FAERS Safety Report 10933324 (Version 1)
Quarter: 2015Q1

REPORT INFORMATION
  Report Type: Spontaneous
  Country: US (occurrence: US)
  Receive Date: 20150320
  Receipt Date: 20150320
  Transmission Date: 20150721
  Serious: Yes (Life-Threatening, Hospitalization, Other)
  Sender: FDA-Public Use
  Company Number: US-ROCHE-1552541

PATIENT
  Age: 39 Year
  Sex: Female
  Weight: 59.02 kg

DRUGS (14)
  1. DETROL LA [Concomitant]
     Active Substance: TOLTERODINE TARTRATE
  2. OXYBUTYNIN [Concomitant]
     Active Substance: OXYBUTYNIN
  3. BISACODYL. [Concomitant]
     Active Substance: BISACODYL
  4. POLYETHYLENE GLYCOL [Concomitant]
     Active Substance: POLYETHYLENE GLYCOLS
  5. CYCLOBENZAPRINE [Concomitant]
     Active Substance: CYCLOBENZAPRINE
  6. RITUXAN [Suspect]
     Active Substance: RITUXIMAB
     Indication: PRODUCT USED FOR UNKNOWN INDICATION
     Route: 065
  7. DOCUSATE-SENNA [Concomitant]
  8. ACETAMINOPHEN. [Concomitant]
     Active Substance: ACETAMINOPHEN
  9. FAMOTIDINE. [Concomitant]
     Active Substance: FAMOTIDINE
  10. IBUPROFEN. [Concomitant]
     Active Substance: IBUPROFEN
  11. BACLOFEN. [Concomitant]
     Active Substance: BACLOFEN
  12. AMPYRA [Concomitant]
     Active Substance: DALFAMPRIDINE
  13. ZOFRAN [Concomitant]
     Active Substance: ONDANSETRON HYDROCHLORIDE
  14. PANTOPRAZOLE [Concomitant]
     Active Substance: PANTOPRAZOLE SODIUM

REACTIONS (8)
  - Craniocerebral injury [Unknown]
  - Suicide attempt [Recovered/Resolved]
  - Muscular weakness [Recovering/Resolving]
  - Fall [Unknown]
  - Vision blurred [Unknown]
  - Dizziness [Unknown]
  - Headache [Recovered/Resolved with Sequelae]
  - Multiple sclerosis relapse [Unknown]

NARRATIVE: CASE EVENT DATE: 20150206
